FAERS Safety Report 10443987 (Version 1)
Quarter: 2014Q3

REPORT INFORMATION
  Report Type: Spontaneous
  Country: US (occurrence: US)
  Receive Date: 20140910
  Receipt Date: 20140910
  Transmission Date: 20150326
  Serious: No
  Sender: FDA-Public Use
  Company Number: US-BAYER-2014-135014

PATIENT
  Age: 61 Year
  Sex: Female
  Weight: 54 kg

DRUGS (1)
  1. ALEVE [Suspect]
     Active Substance: NAPROXEN SODIUM
     Indication: INFLAMMATION
     Dosage: 1 DF, BID
     Route: 048
     Dates: start: 20140901

REACTIONS (3)
  - Diarrhoea [Not Recovered/Not Resolved]
  - Expired product administered [None]
  - Intentional product misuse [None]

NARRATIVE: CASE EVENT DATE: 20140901
